FAERS Safety Report 20232785 (Version 1)
Quarter: 2021Q4

REPORT INFORMATION
  Report Type: Report from Study
  Country: CH (occurrence: CH)
  Receive Date: 20211227
  Receipt Date: 20211227
  Transmission Date: 20220303
  Serious: Yes (Hospitalization, Other)
  Sender: FDA-Public Use
  Company Number: CH-ABBVIE-21K-151-4094216-00

PATIENT
  Sex: Female

DRUGS (11)
  1. CARBIDOPA\LEVODOPA [Suspect]
     Active Substance: CARBIDOPA\LEVODOPA
     Indication: Parkinson^s disease
     Dosage: MD 2ML, CRD 4.5ML/H, CRN 1.4ML/H, ED 1.5ML?24H THERAPY
     Route: 050
     Dates: start: 20190927, end: 20191001
  2. CARBIDOPA\LEVODOPA [Suspect]
     Active Substance: CARBIDOPA\LEVODOPA
     Dosage: MD: 3.0 ML, CRD: 5.4 ML/H, CRN: 3.8 ML/H, ED: 2.5 ML?24H THERAPY
     Route: 050
     Dates: start: 20191001
  3. CARBIDOPA\LEVODOPA [Suspect]
     Active Substance: CARBIDOPA\LEVODOPA
     Dosage: MD: 5.0 ML, CRD: 3.1 ML/H, CRN: 2.0 ML/H, ED: 2.0 ML?24H THERAPY
     Route: 050
     Dates: start: 20210915, end: 20210917
  4. CARBIDOPA\LEVODOPA [Suspect]
     Active Substance: CARBIDOPA\LEVODOPA
     Dosage: MD: 3.0 ML, CRD: 2.6 ML/H, CRN: 2.0 ML/H, ED: 2.0 ML?24H THERAPY
     Route: 050
     Dates: start: 20210917, end: 20210921
  5. CARBIDOPA\LEVODOPA [Suspect]
     Active Substance: CARBIDOPA\LEVODOPA
     Dosage: MD: 2.0 ML, CRD: 2.6 ML/H, CRN: 2.0 ML/H, ED: 1.0 ML?24H THERAPY
     Route: 050
     Dates: start: 20210921, end: 20210923
  6. CARBIDOPA\LEVODOPA [Suspect]
     Active Substance: CARBIDOPA\LEVODOPA
     Dosage: MD: 2.0 ML, CRD: 2.8 ML/H, CRN: 2.0 ML/H, ED: 1.0 ML?24H THERAPY
     Route: 050
     Dates: start: 20210923, end: 20210924
  7. CARBIDOPA\LEVODOPA [Suspect]
     Active Substance: CARBIDOPA\LEVODOPA
     Dosage: MD: 1.5 ML, CRD: 2.6 ML/H, CRN: UNKNOWN ML/H, ED: 1.0 ML?24H THERAPY
     Route: 050
     Dates: start: 20210924, end: 20210927
  8. CARBIDOPA\LEVODOPA [Suspect]
     Active Substance: CARBIDOPA\LEVODOPA
     Dosage: MD: 2.0 ML, CRD: 3.2 ML/H, CRN: 2.0 ML/H, ED: 2.0 ML?24H THERAPY
     Route: 050
     Dates: start: 20210927, end: 202109
  9. CARBIDOPA\LEVODOPA [Suspect]
     Active Substance: CARBIDOPA\LEVODOPA
     Dosage: MD: 3.2 ML, CRD: 2.0 ML/H, CRN: 2.0 ML/H?24H THERAPY
     Route: 050
     Dates: start: 202109, end: 20210930
  10. CARBIDOPA\LEVODOPA [Suspect]
     Active Substance: CARBIDOPA\LEVODOPA
     Dosage: MD: 2.0 ML, CRD: 3.2 ML/H, CRN: 2.0 ML/H, ED: 2.0 ML
     Route: 050
     Dates: start: 20210930, end: 20211022
  11. CARBIDOPA\LEVODOPA [Suspect]
     Active Substance: CARBIDOPA\LEVODOPA
     Dosage: MD: 2.0 ML, CRD: 3.2 ML/H (3.4 ML IN THE AFTERNOON), CRN: 2.0 ML/H, ED: 2.2 ML.
     Route: 050
     Dates: start: 20211022

REACTIONS (29)
  - Rehabilitation therapy [Recovered/Resolved]
  - On and off phenomenon [Not Recovered/Not Resolved]
  - Affective disorder [Unknown]
  - Incorrect dose administered [Recovered/Resolved]
  - Disturbance in attention [Unknown]
  - Loss of personal independence in daily activities [Unknown]
  - Crying [Unknown]
  - Speech disorder [Unknown]
  - Intentional medical device removal by patient [Unknown]
  - Panic attack [Not Recovered/Not Resolved]
  - Extra dose administered [Recovered/Resolved]
  - Mental disorder [Not Recovered/Not Resolved]
  - Condition aggravated [Unknown]
  - Tremor [Recovered/Resolved]
  - Stoma site pain [Not Recovered/Not Resolved]
  - Anxiety [Unknown]
  - Hyperkinesia [Not Recovered/Not Resolved]
  - Dyskinesia [Recovering/Resolving]
  - Depression [Unknown]
  - Device issue [Unknown]
  - Hyperhidrosis [Not Recovered/Not Resolved]
  - Unevaluable event [Unknown]
  - Intentional medical device removal by patient [Unknown]
  - Tremor [Unknown]
  - Restlessness [Unknown]
  - Psychiatric decompensation [Unknown]
  - Device use issue [Unknown]
  - Speech disorder [Unknown]
  - Drug ineffective [Unknown]

NARRATIVE: CASE EVENT DATE: 20210101
